FAERS Safety Report 4609192-2 (Version None)
Quarter: 2005Q1

REPORT INFORMATION
  Report Type: 
  Country: None (occurrence: None)
  Receive Date: 20050311
  Receipt Date: 20050303
  Transmission Date: 20050727
  Serious: Yes (Death, Hospitalization, Other)
  Sender: FDA-Public Use
  Company Number: 163-20785-05030098

PATIENT
  Age: 48 Year
  Sex: Male

DRUGS (24)
  1. THALOMID [Suspect]
     Indication: MULTIPLE MYELOMA
     Dosage: SEE IMAGE
     Route: 048
     Dates: start: 19981104, end: 20000807
  2. THALOMID [Suspect]
     Indication: MULTIPLE MYELOMA
     Dosage: SEE IMAGE
     Route: 048
     Dates: start: 20040524, end: 20040604
  3. THALOMID [Suspect]
     Indication: MULTIPLE MYELOMA
     Dosage: SEE IMAGE
     Route: 048
     Dates: start: 20030324
  4. DEXAMETHASONE [Suspect]
     Indication: MULTIPLE MYELOMA
     Dosage: SEE IMAGE
     Dates: start: 19981001, end: 20001001
  5. DEXAMETHASONE [Suspect]
     Indication: MULTIPLE MYELOMA
     Dosage: SEE IMAGE
     Dates: start: 20040524, end: 20040601
  6. DEXAMETHASONE [Suspect]
     Indication: MULTIPLE MYELOMA
     Dosage: SEE IMAGE
     Dates: start: 20030324
  7. DEXAMETHASONE [Suspect]
     Indication: MULTIPLE MYELOMA
     Dosage: SEE IMAGE
     Dates: start: 20030501
  8. ADRIAMYCIN PFS [Suspect]
     Indication: MULTIPLE MYELOMA
     Dosage: 10 MG/M2 (CONT. INFUSION TIMES 4 DAYS)
     Dates: start: 20030324
  9. CYCLOPHOSPHAMIDE [Suspect]
     Indication: MULTIPLE MYELOMA
     Dosage: 400 MG/M2 (CONT. INFUSION TIMES 4 DAYS)
     Dates: start: 20030324
  10. ETOPOSIDE [Suspect]
     Indication: MULTIPLE MYELOMA
     Dosage: 40 MG/M2 (CONT. INFUSION TIMES 4 DAYS)
     Dates: start: 20030324
  11. VELCADE [Suspect]
     Dosage: SEE IMAGE
     Dates: start: 20040524, end: 20040601
  12. VELCADE [Suspect]
     Dosage: SEE IMAGE
     Dates: start: 20041209, end: 20041209
  13. MELPHALAN (MELPHALAN) [Suspect]
     Dosage: 125 MG/M2
     Dates: start: 20041209, end: 20041209
  14. AREDIA [Concomitant]
  15. ERYTHROPOIETIN (ERYTHROPOIETIN) [Concomitant]
  16. ANTIBIOTICS (ANTIBIOTICS) [Concomitant]
  17. COZAAR [Concomitant]
  18. CLONIDINE [Concomitant]
  19. MINOXIDIL [Concomitant]
  20. PAMELOR [Concomitant]
  21. NEXIUM [Concomitant]
  22. NIFEREX (POLYSACCHARIDE-IRON COMPLEX) [Concomitant]
  23. ZOLOFT [Concomitant]
  24. PHOSLO [Concomitant]

REACTIONS (35)
  - ALOPECIA [None]
  - BLADDER CANCER [None]
  - C-REACTIVE PROTEIN [None]
  - CACHEXIA [None]
  - CARDIOMEGALY [None]
  - CELLULITIS [None]
  - CLOSTRIDIUM COLITIS [None]
  - DIARRHOEA [None]
  - DIASTOLIC HYPERTENSION [None]
  - DISEASE PROGRESSION [None]
  - FATIGUE [None]
  - HAEMODIALYSIS [None]
  - HAEMOGLOBIN DECREASED [None]
  - HYPOALBUMINAEMIA [None]
  - LIGHT CHAIN DISEASE [None]
  - MALIGNANT NEOPLASM PROGRESSION [None]
  - MEDICAL DEVICE COMPLICATION [None]
  - MULTIPLE FRACTURES [None]
  - MYELODYSPLASTIC SYNDROME [None]
  - NEUROPATHY PERIPHERAL [None]
  - PAIN [None]
  - PAIN IN EXTREMITY [None]
  - PARAESTHESIA [None]
  - PNEUMONIA [None]
  - PROTEIN TOTAL DECREASED [None]
  - RASH [None]
  - RASH ERYTHEMATOUS [None]
  - RED MAN SYNDROME [None]
  - RENAL FAILURE [None]
  - SKIN LESION [None]
  - SKIN ULCER [None]
  - STOMATITIS [None]
  - THROMBOCYTOPENIA [None]
  - VENTRICULAR HYPERTROPHY [None]
  - WEIGHT DECREASED [None]
